FAERS Safety Report 12167191 (Version 1)
Quarter: 2016Q1

REPORT INFORMATION
  Report Type: Spontaneous
  Country: US (occurrence: None)
  Receive Date: 20160309
  Receipt Date: 20160309
  Transmission Date: 20160526
  Serious: Yes (Disabling)
  Sender: FDA-Public Use
  Company Number: None

PATIENT
  Age: 67 Year
  Sex: Male
  Weight: 127.01 kg

DRUGS (1)
  1. LEVAQUIN [Suspect]
     Active Substance: LEVOFLOXACIN
     Dosage: 7 PILLS ONE PER DAY ONCE DAILY

REACTIONS (5)
  - Pain in extremity [None]
  - Impaired work ability [None]
  - Tendon rupture [None]
  - Abasia [None]
  - Tendon pain [None]
